FAERS Safety Report 7329325 (Version 2)
Quarter: 2014Q3

REPORT INFORMATION
  Report Type: Spontaneous
  Country: US (occurrence: None)
  Receive Date: 20100305
  Receipt Date: 20140905
  Transmission Date: 20150326
  Serious: Yes (Hospitalization, Other)
  Sender: FDA-Public Use
  Company Number: 2010S1000769

PATIENT
  Age: 63 Year
  Sex: Female
  Weight: 88 kg

DRUGS (12)
  1. SEREVENT (SALMETEROL XINAFOATE) [Concomitant]
  2. ATROVENT (IMPRATROPIUM) [Concomitant]
  3. PULMICORT TURBUHALER [Concomitant]
     Active Substance: BUDESONIDE
  4. SYNTHROID [Concomitant]
     Active Substance: LEVOTHYROXINE SODIUM
  5. PHOSPHO-SODA [Suspect]
     Active Substance: SODIUM PHOSPHATE, DIBASIC\SODIUM PHOSPHATE, MONOBASIC
     Indication: COLONOSCOPY
     Dosage: 90 ML;TOTAL;PO
     Route: 048
     Dates: start: 20000907, end: 20000908
  6. ZYRTEC [Concomitant]
     Active Substance: CETIRIZINE HYDROCHLORIDE
  7. PREMPRO (MEDROXYOPROGESTERONE ACETATE, ESTROGENS CONJUGATED) [Concomitant]
  8. NAPROSYN (NAPROXEN) [Concomitant]
  9. SINGULAIR (MONTELUKAST SODIUM) [Concomitant]
  10. PREVACID [Concomitant]
     Active Substance: LANSOPRAZOLE
  11. HYDRALAZINE (HYDRALAZINE) [Concomitant]
     Active Substance: HYDRALAZINE HYDROCHLORIDE
  12. ASPIRIN (ACETYLSALICYLIC ACID) [Concomitant]
     Active Substance: ASPIRIN

REACTIONS (7)
  - Decreased appetite [None]
  - Renal failure acute [None]
  - Tubulointerstitial nephritis [None]
  - Malaise [None]
  - Anaemia [None]
  - Blood parathyroid hormone increased [None]
  - Renal disorder [None]

NARRATIVE: CASE EVENT DATE: 200009
